FAERS Safety Report 7717931-7 (Version None)
Quarter: 2011Q3

REPORT INFORMATION
  Report Type: 
  Country: None (occurrence: None)
  Receive Date: 20110830
  Receipt Date: 20110820
  Transmission Date: 20111222
  Serious: Yes (Hospitalization)
  Sender: FDA-Public Use
  Company Number: US-JNJFOC-20110800836

PATIENT
  Sex: Female

DRUGS (2)
  1. INVEGA SUSTENNA [Suspect]
     Indication: SCHIZOPHRENIA
     Route: 030
     Dates: start: 20110720
  2. INVEGA SUSTENNA [Suspect]
     Dosage: 24-AUG-2011
     Route: 030

REACTIONS (5)
  - HOMICIDAL IDEATION [None]
  - ANGER [None]
  - TREATMENT NONCOMPLIANCE [None]
  - SCHIZOAFFECTIVE DISORDER [None]
  - INAPPROPRIATE SCHEDULE OF DRUG ADMINISTRATION [None]
